FAERS Safety Report 9937157 (Version 1)
Quarter: 2014Q1

REPORT INFORMATION
  Report Type: Spontaneous
  Country: FI (occurrence: FI)
  Receive Date: 20140301
  Receipt Date: 20140301
  Transmission Date: 20141002
  Serious: Yes (Other)
  Sender: FDA-Public Use
  Company Number: PHHY2014FI022984

PATIENT
  Age: 61 Year
  Sex: Male

DRUGS (11)
  1. VANCOMYCIN [Suspect]
     Indication: DEVICE RELATED INFECTION
     Dosage: 1 G, BID
  2. RIFAMPICIN [Suspect]
     Indication: DEVICE RELATED INFECTION
     Dosage: 600 MG, UNK
  3. PANTOPRAZOLE [Suspect]
     Dosage: 40 MG, UNK
  4. CEFUROXIME [Suspect]
     Dosage: 1.5 MG, TID
  5. MEROPENEM [Suspect]
     Dosage: 1 G, TID
  6. CLOXACILLIN [Suspect]
     Dosage: 2 G, QID
  7. METRONIDAZOLE [Suspect]
     Dosage: 500 MG, TID
  8. DAPTOMYCIN [Concomitant]
     Dosage: 500 MG, UNK
  9. LEVOFLOXACIN [Concomitant]
     Indication: DEVICE RELATED INFECTION
     Dosage: 500 MG, BID
  10. NAPROXEN [Concomitant]
     Indication: DEVICE RELATED INFECTION
     Dosage: 500 MG, TID
  11. CODEINE PHOSPHATE W/PARACETAMOL [Concomitant]

REACTIONS (11)
  - Drug reaction with eosinophilia and systemic symptoms [Recovered/Resolved]
  - Pyrexia [Recovered/Resolved]
  - Leukocytosis [Recovered/Resolved]
  - Eosinophilia [Recovered/Resolved]
  - Toxic epidermal necrolysis [Recovered/Resolved]
  - Rash erythematous [Recovered/Resolved]
  - Dermatitis [Recovered/Resolved]
  - Rash [Recovered/Resolved]
  - Blister [Recovered/Resolved]
  - Skin exfoliation [Recovered/Resolved]
  - Erythema [Recovered/Resolved]
